FAERS Safety Report 13271444 (Version 1)
Quarter: 2017Q1

REPORT INFORMATION
  Report Type: Spontaneous
  Country: US (occurrence: US)
  Receive Date: 20170227
  Receipt Date: 20170227
  Transmission Date: 20170428
  Serious: No
  Sender: FDA-Public Use
  Company Number: US-LUNDBECK-DKLU2024314

PATIENT
  Sex: Female

DRUGS (2)
  1. NORTHERA [Suspect]
     Active Substance: DROXIDOPA
     Dosage: 300 MG AND 200 MG TO MAKE UP 1300 MG TID IN DIVIDED DOSES
     Route: 048
     Dates: start: 20160727
  2. NORTHERA [Suspect]
     Active Substance: DROXIDOPA
     Indication: AUTONOMIC NEUROPATHY
     Dosage: 300 MG AND 200 MG TO MAKE UP 1300 MG TID IN DIVIDED DOSES
     Route: 048
     Dates: start: 20160727

REACTIONS (1)
  - Pruritus generalised [Unknown]
